FAERS Safety Report 21022638 (Version 4)
Quarter: 2022Q3

REPORT INFORMATION
  Report Type: Spontaneous
  Country: US (occurrence: US)
  Receive Date: 20220629
  Receipt Date: 20220818
  Transmission Date: 20221027
  Serious: No
  Sender: FDA-Public Use
  Company Number: US-PFIZER INC-202200903204

PATIENT
  Age: 86 Year
  Sex: Female
  Weight: 61.224 kg

DRUGS (2)
  1. PAXLOVID [Suspect]
     Active Substance: NIRMATRELVIR\RITONAVIR
     Indication: COVID-19 treatment
     Dosage: 1 PINK PILL AND 1 WHITE PILL/RITONAVIR 100MG AND NIRMATRELVIR 150MG
     Route: 048
     Dates: start: 20220622, end: 20220626
  2. PAXLOVID [Suspect]
     Active Substance: NIRMATRELVIR\RITONAVIR
     Dosage: 10 MG, 2X/DAY
     Dates: start: 20220626, end: 20220630

REACTIONS (8)
  - Dry mouth [Not Recovered/Not Resolved]
  - Lip disorder [Recovered/Resolved]
  - Dysgeusia [Recovered/Resolved]
  - Cough [Not Recovered/Not Resolved]
  - Madarosis [Not Recovered/Not Resolved]
  - Lip dry [Unknown]
  - Abdominal pain [Unknown]
  - Liver disorder [Unknown]

NARRATIVE: CASE EVENT DATE: 20220627
